FAERS Safety Report 13668141 (Version 2)
Quarter: 2017Q3

REPORT INFORMATION
  Report Type: Spontaneous
  Country: US (occurrence: US)
  Receive Date: 20170620
  Receipt Date: 20170906
  Transmission Date: 20171127
  Serious: No
  Sender: FDA-Public Use
  Company Number: US-PFIZER INC-2017266985

PATIENT
  Age: 65 Year
  Sex: Female
  Weight: 95.25 kg

DRUGS (1)
  1. VENLAFAXINE HCL [Suspect]
     Active Substance: VENLAFAXINE HYDROCHLORIDE
     Indication: NERVE INJURY
     Dosage: 1 DF, DAILY (ONE CAPSULE A DAY BY MOUTH)
     Route: 048

REACTIONS (4)
  - Drug ineffective for unapproved indication [Unknown]
  - Tremor [Recovered/Resolved]
  - Dizziness [Recovered/Resolved]
  - Drug intolerance [Recovered/Resolved]
